FAERS Safety Report 10057801 (Version 4)
Quarter: 2014Q3

REPORT INFORMATION
  Report Type: Spontaneous
  Country: PT (occurrence: PT)
  Receive Date: 20140404
  Receipt Date: 20140914
  Transmission Date: 20150326
  Serious: Yes (Other)
  Sender: FDA-Public Use
  Company Number: PT-009507513-1404PRT000974

PATIENT
  Age: 62 Year
  Sex: Female
  Weight: 59 kg

DRUGS (1)
  1. FOSAVANCE [Suspect]
     Active Substance: ALENDRONATE SODIUM\CHOLECALCIFEROL
     Indication: OSTEOPOROSIS
     Dosage: ALL THE USAGE PRECAUTIONS HAVE ALWAYS BEEN MET BY THE PATIENT
     Route: 048
     Dates: start: 201312, end: 20140309

REACTIONS (14)
  - Abdominal pain [Recovered/Resolved]
  - Nausea [Recovered/Resolved]
  - Gastrointestinal inflammation [Recovered/Resolved]
  - Gingivitis [Recovered/Resolved]
  - Gastritis erosive [Recovered/Resolved]
  - Gastric ulcer [Recovered/Resolved]
  - Dizziness [Recovered/Resolved]
  - Aphthous stomatitis [Recovered/Resolved]
  - Fatigue [Recovered/Resolved]
  - Abdominal pain upper [Recovered/Resolved]
  - Dysgeusia [Recovered/Resolved]
  - Blood pressure increased [Recovered/Resolved]
  - Abdominal distension [Recovered/Resolved]
  - Vomiting [Recovered/Resolved]

NARRATIVE: CASE EVENT DATE: 201312
